FAERS Safety Report 6354920-1 (Version None)
Quarter: 2009Q3

REPORT INFORMATION
  Report Type: 
  Country: None (occurrence: None)
  Receive Date: 20090914
  Receipt Date: 20090903
  Transmission Date: 20100115
  Serious: Yes (Hospitalization, Other)
  Sender: FDA-Public Use
  Company Number: US-AVENTIS-200917909US

PATIENT
  Sex: Male

DRUGS (2)
  1. LANTUS [Suspect]
     Dosage: DOSE: UNK
     Route: 058
  2. METFORMIN HCL [Suspect]
     Dosage: DOSE: UNK

REACTIONS (3)
  - CARDIAC OPERATION [None]
  - DYSPNOEA [None]
  - PULMONARY EMBOLISM [None]
